FAERS Safety Report 6386975-2 (Version None)
Quarter: 2009Q4

REPORT INFORMATION
  Report Type: 
  Country: None (occurrence: None)
  Receive Date: 20091002
  Receipt Date: 20090921
  Transmission Date: 20100525
  Serious: Yes (Death, Other)
  Sender: FDA-Public Use
  Company Number: US-WATSON-2009-07791

PATIENT
  Sex: Male

DRUGS (22)
  1. HYDROXYZINE HCL [Suspect]
     Indication: DRUG USE FOR UNKNOWN INDICATION
     Dosage: UNK
     Route: 048
  2. LORAZEPAM [Suspect]
     Indication: AGITATION
     Dosage: UNK
     Route: 048
     Dates: start: 19960508
  3. CEFTRIAXONE SODIUM [Suspect]
     Indication: PROPHYLAXIS
     Dosage: UNK
     Dates: start: 19960508
  4. INVIRASE [Suspect]
     Indication: HIV INFECTION
     Dosage: 600 MG, DAILY
     Route: 048
     Dates: start: 19960501
  5. VERSED [Suspect]
     Indication: AGITATION
     Dosage: UNK
     Dates: start: 19960508
  6. TRIMETHOPRIM [Suspect]
     Indication: ANTIBIOTIC PROPHYLAXIS
     Dosage: 150 MG, Q24H
  7. AMPICILLIN [Suspect]
     Indication: ANTIBIOTIC PROPHYLAXIS
     Dosage: UNK
     Dates: start: 19960508
  8. AZT [Suspect]
     Indication: ANTIRETROVIRAL THERAPY
     Dosage: 200 MG, Q8H
  9. 3TC [Suspect]
     Indication: ANTIRETROVIRAL THERAPY
     Dosage: 150 MG, Q 12H
  10. SULPHADIAZINE                      /00076401/ [Suspect]
     Indication: DRUG USE FOR UNKNOWN INDICATION
     Dosage: 25 MG, Q8H
  11. DILANTIN [Suspect]
     Indication: DRUG USE FOR UNKNOWN INDICATION
     Dosage: 200 MG, Q 12H
  12. METHADONE [Suspect]
     Indication: DRUG USE FOR UNKNOWN INDICATION
     Dosage: 40 MG, DAILY
  13. ETHAMBUTOL HYDROCHLORIDE [Suspect]
     Indication: ANTIBIOTIC PROPHYLAXIS
     Dosage: 150 MG, BID
  14. FOLIC ACID [Suspect]
     Indication: DRUG USE FOR UNKNOWN INDICATION
     Dosage: 5 MG, DAILY
  15. PYRIMETHAMINE [Suspect]
     Indication: DRUG USE FOR UNKNOWN INDICATION
     Dosage: 25 MG, Q8H
  16. HALDOL [Suspect]
     Indication: AGITATION
     Dosage: UNK
     Dates: start: 19960508
  17. PEPCID [Suspect]
     Indication: DRUG USE FOR UNKNOWN INDICATION
     Dosage: UNK
     Dates: start: 19960508
  18. CLINDAMYCIN [Suspect]
     Indication: TOXOPLASMOSIS
     Dosage: UNK
     Dates: start: 19960508
  19. ACYCLOVIR [Suspect]
     Indication: ANTIBIOTIC PROPHYLAXIS
     Dosage: UNK
     Dates: start: 19960508
  20. MANNITOL [Suspect]
     Indication: DRUG USE FOR UNKNOWN INDICATION
     Dosage: UNK
     Dates: start: 19960508
  21. MORPHINE [Suspect]
     Indication: DRUG USE FOR UNKNOWN INDICATION
     Dosage: UNK
     Dates: start: 19960509
  22. COCAINE [Suspect]
     Indication: DRUG USE FOR UNKNOWN INDICATION
     Dosage: UNK

REACTIONS (13)
  - AGITATION [None]
  - ATAXIA [None]
  - BLOOD CREATINE PHOSPHOKINASE INCREASED [None]
  - BLOOD MAGNESIUM DECREASED [None]
  - BLOOD POTASSIUM DECREASED [None]
  - DYSKINESIA [None]
  - HEADACHE [None]
  - HYPOTENSION [None]
  - MENTAL STATUS CHANGES [None]
  - MUSCULAR WEAKNESS [None]
  - TORSADE DE POINTES [None]
  - VENTRICULAR ARRHYTHMIA [None]
  - VENTRICULAR EXTRASYSTOLES [None]
